FAERS Safety Report 10308829 (Version 2)
Quarter: 2014Q3

REPORT INFORMATION
  Report Type: Spontaneous
  Country: GB (occurrence: None)
  Receive Date: 20140714
  Receipt Date: 20140811
  Transmission Date: 20150326
  Serious: Yes (Hospitalization)
  Sender: FDA-Public Use
  Company Number: AUR-APL-2014-07287

PATIENT
  Age: 22 Year
  Sex: Female

DRUGS (5)
  1. FOLIC ACID (FOLIC ACID) [Concomitant]
     Active Substance: FOLIC ACID
  2. SOFRADEX 00049501/DEXAMETHASONE, FRANMYCETIN SULFATE, GRAMICIDIN) [Concomitant]
  3. SEROXAT (PAROXETINE HYDROCHLORIDE) [Concomitant]
  4. LAMOTRIGINE. [Suspect]
     Active Substance: LAMOTRIGINE
     Indication: EPILEPSY
     Route: 048
     Dates: start: 20130801, end: 20130808
  5. AMLODIPINE [Concomitant]
     Active Substance: AMLODIPINE BESYLATE

REACTIONS (10)
  - Blood pressure abnormal [None]
  - Hypersensitivity [None]
  - Rash generalised [None]
  - Loss of employment [None]
  - Depression [None]
  - Migraine [None]
  - Muscle spasms [None]
  - Malaise [None]
  - Drug eruption [None]
  - Peripheral swelling [None]

NARRATIVE: CASE EVENT DATE: 20130801
